FAERS Safety Report 5340279-5 (Version None)
Quarter: 2007Q2

REPORT INFORMATION
  Report Type: 
  Country: None (occurrence: None)
  Receive Date: 20070405
  Receipt Date: 20070105
  Transmission Date: 20071010
  Serious: Yes (Hospitalization)
  Sender: FDA-Public Use
  Company Number: US200611004032

PATIENT
  Age: 75 Year
  Sex: Female

DRUGS (8)
  1. CYMBALTA [Suspect]
     Indication: HYPOAESTHESIA
     Dosage: SEE IMAGE
     Dates: start: 20061017, end: 20061027
  2. CYMBALTA [Suspect]
     Dates: start: 20061028, end: 20061029
  3. MICARDIS [Concomitant]
  4. THYROID TAB [Concomitant]
  5. XANAX /USA/ (ALPRAZOLAM) [Concomitant]
  6. ASCORBIC ACID [Concomitant]
  7. VITAMIN E [Concomitant]
  8. CALCIUM CITRATE (CALCIUM CITRATE) [Concomitant]

REACTIONS (20)
  - ABDOMINAL PAIN [None]
  - ANOREXIA [None]
  - ASTHENIA [None]
  - BALANCE DISORDER [None]
  - DIARRHOEA [None]
  - DIZZINESS [None]
  - DRY MOUTH [None]
  - FALL [None]
  - FATIGUE [None]
  - GAIT DISTURBANCE [None]
  - GASTROOESOPHAGEAL REFLUX DISEASE [None]
  - HYPERHIDROSIS [None]
  - INSOMNIA [None]
  - MALAISE [None]
  - NAUSEA [None]
  - RETCHING [None]
  - SKIN ODOUR ABNORMAL [None]
  - THIRST [None]
  - VOMITING [None]
  - WEIGHT DECREASED [None]
